FAERS Safety Report 7473411-8 (Version None)
Quarter: 2011Q1

REPORT INFORMATION
  Report Type: 
  Country: None (occurrence: None)
  Receive Date: 20110302
  Receipt Date: 20101116
  Transmission Date: 20110831
  Serious: Yes (Disabling, Other)
  Sender: FDA-Public Use
  Company Number: 163-21880-10051177

PATIENT
  Age: 79 Year
  Sex: Male

DRUGS (5)
  1. DEXAMETHASONE [Suspect]
     Indication: PRODUCT USED FOR UNKNOWN INDICATION
     Dosage: 20 MG, WEEKLY, PO
     Route: 048
     Dates: start: 20100101
  2. REVLIMID [Suspect]
  3. REVLIMID [Suspect]
     Indication: MULTIPLE MYELOMA
     Dosage: 25 MG, 1 IN 1 D, PO; 15 MG, 1 IN 1 D, PO
     Route: 048
     Dates: start: 20100801
  4. REVLIMID [Suspect]
     Indication: MULTIPLE MYELOMA
     Dosage: 25 MG, 1 IN 1 D, PO; 15 MG, 1 IN 1 D, PO
     Route: 048
     Dates: start: 20100201
  5. REVLIMID [Suspect]

REACTIONS (7)
  - ANAEMIA [None]
  - ASTHENIA [None]
  - CATARACT [None]
  - DIARRHOEA [None]
  - MYALGIA [None]
  - HYPOACUSIS [None]
  - FATIGUE [None]
